FAERS Safety Report 8005375-2 (Version None)
Quarter: 2011Q4

REPORT INFORMATION
  Report Type: 
  Country: None (occurrence: None)
  Receive Date: 20111223
  Receipt Date: 20111214
  Transmission Date: 20120403
  Serious: No
  Sender: FDA-Public Use
  Company Number: JP-ROCHE-1009308

PATIENT
  Sex: Female

DRUGS (5)
  1. ATARAX [Concomitant]
  2. ACTEMRA [Suspect]
     Route: 041
     Dates: start: 20090108, end: 20100323
  3. ACTEMRA [Suspect]
     Indication: CASTLEMAN'S DISEASE
     Route: 041
     Dates: start: 20091106, end: 20091120
  4. ACTEMRA [Suspect]
     Route: 041
     Dates: start: 20091204, end: 20091218
  5. ACTEMRA [Suspect]
     Route: 041
     Dates: start: 20100412, end: 20100910

REACTIONS (4)
  - PRURITUS GENERALISED [None]
  - DIARRHOEA [None]
  - NAUSEA [None]
  - ABDOMINAL PAIN [None]
